FAERS Safety Report 7051699-5 (Version None)
Quarter: 2010Q4

REPORT INFORMATION
  Report Type: 
  Country: None (occurrence: None)
  Receive Date: 20101018
  Receipt Date: 20101018
  Transmission Date: 20110411
  Serious: Yes (Other)
  Sender: FDA-Public Use
  Company Number: None

PATIENT
  Age: 57 Year
  Sex: Female
  Weight: 92.9874 kg

DRUGS (1)
  1. SINGULAIR [Suspect]
     Indication: ASTHMA
     Dosage: ONE DAILY PO
     Route: 048
     Dates: start: 20101010, end: 20101013

REACTIONS (8)
  - AMNESIA [None]
  - ANXIETY [None]
  - BLOOD PRESSURE SYSTOLIC INCREASED [None]
  - DISORIENTATION [None]
  - HEART RATE INCREASED [None]
  - INSOMNIA [None]
  - PALPITATIONS [None]
  - TREMOR [None]
